FAERS Safety Report 23407983 (Version 1)
Quarter: 2024Q1

REPORT INFORMATION
  Report Type: Report from Study
  Country: CA (occurrence: CA)
  Receive Date: 20240117
  Receipt Date: 20240117
  Transmission Date: 20240409
  Serious: Yes (Other)
  Sender: FDA-Public Use
  Company Number: CA-002147023-NVSC2022CA164931

PATIENT
  Age: 82 Year
  Sex: Female

DRUGS (2)
  1. ERELZI [Suspect]
     Active Substance: ETANERCEPT-SZZS
     Indication: Psoriatic arthropathy
     Dosage: 50 MG, QW(1 EVERY 1 WEEKS )
     Route: 058
     Dates: start: 20220413
  2. TALTZ [Concomitant]
     Active Substance: IXEKIZUMAB
     Indication: Product used for unknown indication
     Dosage: UNK
     Route: 065

REACTIONS (9)
  - Akinesia [Unknown]
  - Malaise [Unknown]
  - Osteoarthritis [Unknown]
  - Peripheral swelling [Unknown]
  - Grip strength decreased [Unknown]
  - Injection site discharge [Unknown]
  - COVID-19 [Unknown]
  - Product supply issue [Unknown]
  - Drug ineffective [Unknown]
